FAERS Safety Report 14174885 (Version 1)
Quarter: 2017Q4

REPORT INFORMATION
  Report Type: Spontaneous
  Country: US (occurrence: US)
  Receive Date: 20171109
  Receipt Date: 20171109
  Transmission Date: 20180321
  Serious: Yes (Hospitalization)
  Sender: FDA-Public Use
  Company Number: US-ELI_LILLY_AND_COMPANY-US201711000856

PATIENT
  Sex: Female

DRUGS (4)
  1. LANTUS [Concomitant]
     Active Substance: INSULIN GLARGINE
     Indication: TYPE 2 DIABETES MELLITUS
     Dosage: LOW DOSE, UNKNOWN
     Route: 065
     Dates: end: 20171006
  2. BASAGLAR [Suspect]
     Active Substance: INSULIN GLARGINE
     Indication: TYPE 2 DIABETES MELLITUS
     Dosage: LOW DOSE, UNKNOWN
     Route: 065
     Dates: start: 201705
  3. BASAGLAR [Suspect]
     Active Substance: INSULIN GLARGINE
     Dosage: 100 IU, DAILY (80 UNITS IN THE AM AND 20 UNITS AT NIGHT)
     Route: 065
     Dates: start: 20171006
  4. NOVOLOG [Concomitant]
     Active Substance: INSULIN ASPART
     Indication: TYPE 2 DIABETES MELLITUS
     Dosage: LOW DOSE, UNKNOWN
     Route: 065
     Dates: end: 20171006

REACTIONS (1)
  - Blood glucose increased [Recovered/Resolved]
